FAERS Safety Report 14320467 (Version 4)
Quarter: 2018Q2

REPORT INFORMATION
  Report Type: Report from Study
  Country: US (occurrence: US)
  Receive Date: 20171222
  Receipt Date: 20180531
  Transmission Date: 20180711
  Serious: Yes (Hospitalization)
  Sender: FDA-Public Use
  Company Number: US-ACTELION-A-US2017-164527

PATIENT
  Age: 75 Year
  Sex: Female
  Weight: 99.77 kg

DRUGS (4)
  1. ROCEPHIN [Concomitant]
     Active Substance: CEFTRIAXONE SODIUM
  2. TRACLEER [Suspect]
     Active Substance: BOSENTAN
     Indication: PULMONARY ARTERIAL HYPERTENSION
     Dosage: 125 MG, BID
     Route: 048
  3. CORTISONE [Concomitant]
     Active Substance: CORTISONE\HYDROCORTISONE
  4. REVATIO [Concomitant]
     Active Substance: SILDENAFIL CITRATE

REACTIONS (16)
  - Sputum discoloured [Unknown]
  - Fatigue [Unknown]
  - Syncope [Unknown]
  - Presyncope [Unknown]
  - Heart rate increased [Unknown]
  - Chest pain [Unknown]
  - Hernia repair [Unknown]
  - Pneumonia [Unknown]
  - Atrial fibrillation [Unknown]
  - Autonomic nervous system imbalance [Unknown]
  - Limb injury [Unknown]
  - Cough [Unknown]
  - Dyspnoea [Unknown]
  - Dizziness [Unknown]
  - Hypotension [Unknown]
  - Cellulitis [Unknown]
